FAERS Safety Report 9339148 (Version 1)
Quarter: 2013Q2

REPORT INFORMATION
  Report Type: Spontaneous
  Country: US (occurrence: None)
  Receive Date: 20130603
  Receipt Date: 20130603
  Transmission Date: 20140414
  Serious: Yes (Hospitalization)
  Sender: FDA-Public Use
  Company Number: GAM-154-13-US

PATIENT
  Age: 34 Year
  Sex: Female

DRUGS (5)
  1. OCTAGAM 5 (HUMAN NORMAL IMMUNOGLOBULIN FOR INTRAVENOUS ADMINISTRATION) [Suspect]
     Dosage: 35 G (1X 3 ./ WEEKS) IV
     Route: 042
     Dates: start: 201208, end: 201208
  2. CINRYZE [Suspect]
     Indication: HEREDITARY ANGIOEDEMA
     Route: 042
  3. COMPLEMENT C1 ESTERASE INHIBITOR [Concomitant]
  4. HYDROMORPHONE [Concomitant]
  5. PROMETHAZINE [Concomitant]

REACTIONS (1)
  - Deep vein thrombosis [None]
